FAERS Safety Report 6289332-2 (Version None)
Quarter: 2009Q3

REPORT INFORMATION
  Report Type: 
  Country: None (occurrence: None)
  Receive Date: 20090730
  Receipt Date: 20090723
  Transmission Date: 20100115
  Serious: Yes (Hospitalization)
  Sender: FDA-Public Use
  Company Number: US-BIOGENIDEC-2009BI023208

PATIENT
  Age: 36 Year
  Sex: Female

DRUGS (2)
  1. AVONEX [Suspect]
     Indication: MULTIPLE SCLEROSIS
     Route: 030
     Dates: start: 19990101, end: 20040101
  2. AVONEX [Suspect]
     Route: 030
     Dates: start: 20090201

REACTIONS (3)
  - BRAIN OEDEMA [None]
  - HEADACHE [None]
  - MULTIPLE SCLEROSIS RELAPSE [None]
